FAERS Safety Report 22285089 (Version 1)
Quarter: 2023Q2

REPORT INFORMATION
  Report Type: Report from Study
  Country: US (occurrence: US)
  Receive Date: 20230504
  Receipt Date: 20230504
  Transmission Date: 20230722
  Serious: Yes (Other)
  Sender: FDA-Public Use
  Company Number: US-PFIZER INC-PV202300078685

PATIENT
  Age: 53 Year
  Sex: Male

DRUGS (5)
  1. DILTIAZEM HYDROCHLORIDE [Interacting]
     Active Substance: DILTIAZEM HYDROCHLORIDE
     Dosage: UNK
  2. JYNARQUE [Interacting]
     Active Substance: TOLVAPTAN
     Indication: Congenital cystic kidney disease
     Dosage: 30 MG, 1X/DAY  (UPON WAKING)
     Route: 048
  3. JYNARQUE [Interacting]
     Active Substance: TOLVAPTAN
     Dosage: 15 MG, (8 HOURS LATER)
     Route: 048
  4. JYNARQUE [Interacting]
     Active Substance: TOLVAPTAN
     Dosage: 15 MG, 1X/DAY (UPON WAKING)
     Route: 048
  5. JYNARQUE [Interacting]
     Active Substance: TOLVAPTAN
     Dosage: 15 MG, 1X/DAY (8 HOURS LATER)
     Route: 048

REACTIONS (6)
  - Neck surgery [Unknown]
  - Swelling [Unknown]
  - Dysphagia [Unknown]
  - Drug interaction [Unknown]
  - Underdose [Unknown]
  - Therapy interrupted [Unknown]

NARRATIVE: CASE EVENT DATE: 20220101
